FAERS Safety Report 13379992 (Version 6)
Quarter: 2018Q2

REPORT INFORMATION
  Report Type: Spontaneous
  Country: US (occurrence: US)
  Receive Date: 20170328
  Receipt Date: 20180508
  Transmission Date: 20180711
  Serious: Yes (Other)
  Sender: FDA-Public Use
  Company Number: US-ACTELION-A-NJ2017-151519

PATIENT
  Age: 64 Year
  Sex: Female

DRUGS (13)
  1. ORENITRAM [Suspect]
     Active Substance: TREPROSTINIL
     Dosage: 0.25 MG, TID
     Route: 048
     Dates: start: 20180203
  2. DILTIAZEM CD [Concomitant]
     Active Substance: DILTIAZEM
  3. TOUJEO [Concomitant]
     Active Substance: INSULIN GLARGINE
  4. ADEMPAS [Concomitant]
     Active Substance: RIOCIGUAT
  5. ORENITRAM [Suspect]
     Active Substance: TREPROSTINIL
     Indication: PRODUCT USED FOR UNKNOWN INDICATION
     Dosage: UNK MG, UNK
     Route: 048
     Dates: end: 20180202
  6. LISINOPRIL AND HYDROCHLOROTHIAZIDE [Concomitant]
     Active Substance: HYDROCHLOROTHIAZIDE\LISINOPRIL
  7. METFORMIN [Concomitant]
     Active Substance: METFORMIN HYDROCHLORIDE
     Indication: ESSENTIAL HYPERTENSION
  8. PROTONIX [Concomitant]
     Active Substance: PANTOPRAZOLE SODIUM
  9. OPSUMIT [Suspect]
     Active Substance: MACITENTAN
     Indication: PULMONARY ARTERIAL HYPERTENSION
     Dosage: 10 MG, QD
     Route: 048
     Dates: start: 20170208
  10. ARAVA [Concomitant]
     Active Substance: LEFLUNOMIDE
  11. ELIQUIS [Concomitant]
     Active Substance: APIXABAN
  12. METOPROLOL. [Concomitant]
     Active Substance: METOPROLOL
  13. GLYBURIDE. [Concomitant]
     Active Substance: GLYBURIDE

REACTIONS (16)
  - Multiple allergies [Recovering/Resolving]
  - Pain in jaw [Recovering/Resolving]
  - Hypotension [Recovering/Resolving]
  - Abdominal discomfort [Unknown]
  - Diarrhoea [Unknown]
  - Anaemia [Recovering/Resolving]
  - Nephrolithiasis [Recovering/Resolving]
  - Abdominal pain [Unknown]
  - Abdominal distension [Unknown]
  - Nasal congestion [Recovering/Resolving]
  - Transfusion [Recovering/Resolving]
  - Condition aggravated [Recovering/Resolving]
  - Arthralgia [Recovering/Resolving]
  - Oxygen consumption increased [Recovering/Resolving]
  - Heart rate increased [Recovering/Resolving]
  - Pulmonary hypertension [Unknown]

NARRATIVE: CASE EVENT DATE: 20170306
